FAERS Safety Report 9011861 (Version 1)
Quarter: 2012Q4

REPORT INFORMATION
  Report Type: Spontaneous
  Country: US (occurrence: None)
  Receive Date: 20121228
  Receipt Date: 20121228
  Transmission Date: 20130627
  Serious: Yes (Death)
  Sender: FDA-Public Use
  Company Number: 2012-651

PATIENT
  Age: 85 Year
  Sex: Female

DRUGS (5)
  1. FAZACLO [Suspect]
     Route: 048
     Dates: start: 20090527, end: 20121011
  2. DIGOXIN (DIGOXIN) [Concomitant]
  3. NORVASC (AMLODIPINE BESILATE) [Concomitant]
  4. REMERON (MIRTAZAPINE) [Concomitant]
  5. GABAPENTIN (GABAPENTIN) [Concomitant]

REACTIONS (5)
  - Pneumonia [None]
  - Muscular weakness [None]
  - Failure to thrive [None]
  - General physical health deterioration [None]
  - Hypophagia [None]
